FAERS Safety Report 10234326 (Version 1)
Quarter: 2014Q2

REPORT INFORMATION
  Report Type: Spontaneous
  Country: US (occurrence: US)
  Receive Date: 20140612
  Receipt Date: 20140612
  Transmission Date: 20141212
  Serious: No
  Sender: FDA-Public Use
  Company Number: US-009507513-1406USA006409

PATIENT
  Age: 21 Year
  Sex: Female

DRUGS (3)
  1. NEXPLANON [Suspect]
     Indication: CONTRACEPTION
     Dosage: UNK
     Route: 059
     Dates: start: 20130522
  2. ALLEGRA [Concomitant]
  3. LUTERA [Concomitant]

REACTIONS (3)
  - Metrorrhagia [Unknown]
  - Abdominal pain upper [Unknown]
  - Vomiting [Unknown]
